FAERS Safety Report 10684842 (Version 1)
Quarter: 2014Q4

REPORT INFORMATION
  Report Type: Spontaneous
  Country: US (occurrence: None)
  Receive Date: 20141230
  Receipt Date: 20141230
  Transmission Date: 20150529
  Serious: Yes (Other)
  Sender: FDA-Public Use
  Company Number: None

PATIENT
  Age: 80 Year
  Weight: 79.38 kg

DRUGS (1)
  1. TYLENOL COLD MULTI-SYMPTOM [Suspect]
     Active Substance: ACETAMINOPHEN\DEXTROMETHORPHAN HYDROBROMIDE\DOXYLAMINE SUCCINATE\PHENYLEPHRINE
     Indication: NASOPHARYNGITIS
     Dosage: 1 CAPLET
     Route: 048

REACTIONS (5)
  - Hypersensitivity [None]
  - Throat tightness [None]
  - Dysphagia [None]
  - Tremor [None]
  - No reaction on previous exposure to drug [None]

NARRATIVE: CASE EVENT DATE: 20141229
